FAERS Safety Report 16572738 (Version 1)
Quarter: 2019Q3

REPORT INFORMATION
  Report Type: Spontaneous
  Country: US (occurrence: US)
  Receive Date: 20190531
  Receipt Date: 20190531
  Transmission Date: 20191004
  Serious: Yes (Other)
  Sender: FDA-Public Use
  Company Number: None

PATIENT
  Age: 80 Year
  Sex: Male
  Weight: 92.53 kg

DRUGS (1)
  1. GENERIC LISINOPRIL 20MG [Suspect]
     Active Substance: LISINOPRIL
     Indication: HYPERTENSIVE NEPHROPATHY
     Route: 048
     Dates: start: 20180611, end: 20180716

REACTIONS (2)
  - Product substitution issue [None]
  - Blood pressure inadequately controlled [None]

NARRATIVE: CASE EVENT DATE: 20180716
